FAERS Safety Report 7563205-7 (Version None)
Quarter: 2011Q2

REPORT INFORMATION
  Report Type: 
  Country: None (occurrence: None)
  Receive Date: 20110621
  Receipt Date: 20110621
  Transmission Date: 20111010
  Serious: Yes (Other)
  Sender: FDA-Public Use
  Company Number: None

PATIENT
  Sex: Female
  Weight: 63.5036 kg

DRUGS (6)
  1. LORAZEPAM [Suspect]
     Indication: ANXIETY
  2. LORAZEPAM [Suspect]
     Indication: PARKINSON'S DISEASE
  3. NORTRIPTYLINE HCL [Concomitant]
  4. SYNTHROID [Concomitant]
  5. PRAMIPEXOLE DIHYDROCHLORIDE [Concomitant]
  6. AMANTIDINE [Concomitant]

REACTIONS (2)
  - CHEST DISCOMFORT [None]
  - DRUG INEFFECTIVE [None]
